FAERS Safety Report 7618898-2 (Version None)
Quarter: 2011Q3

REPORT INFORMATION
  Report Type: 
  Country: None (occurrence: None)
  Receive Date: 20110718
  Receipt Date: 20110712
  Transmission Date: 20111222
  Serious: Yes (Hospitalization)
  Sender: FDA-Public Use
  Company Number: US-PFIZER INC-2011138164

PATIENT
  Sex: Female

DRUGS (2)
  1. SUTENT [Suspect]
     Dosage: 50 MG, 1X/DAY
     Route: 048
     Dates: start: 20110314, end: 20110401
  2. SUTENT [Suspect]
     Indication: RENAL CELL CARCINOMA
     Dosage: 25 MG, 1X/DAY

REACTIONS (11)
  - THROMBOCYTOPENIA [None]
  - YELLOW SKIN [None]
  - ASTHENIA [None]
  - LIVER FUNCTION TEST ABNORMAL [None]
  - NEUTROPENIA [None]
  - DECREASED APPETITE [None]
  - PYREXIA [None]
  - FLUID INTAKE RESTRICTION [None]
  - HYPERHIDROSIS [None]
  - LEUKOPENIA [None]
  - ANAEMIA [None]
